FAERS Safety Report 11593050 (Version 1)
Quarter: 2015Q4

REPORT INFORMATION
  Report Type: Spontaneous
  Country: US (occurrence: None)
  Receive Date: 20151002
  Receipt Date: 20151002
  Transmission Date: 20160304
  Serious: No
  Sender: FDA-Public Use
  Company Number: None

PATIENT
  Age: 56 Year
  Sex: Female
  Weight: 94.8 kg

DRUGS (11)
  1. AMBIEN [Concomitant]
     Active Substance: ZOLPIDEM TARTRATE
  2. XANAFLEX [Concomitant]
  3. NEURONTIN [Concomitant]
     Active Substance: GABAPENTIN
  4. GENERIC MUCINEX [Concomitant]
  5. FENTANYL. [Suspect]
     Active Substance: FENTANYL
     Indication: BACK PAIN
     Dosage: 1 PATCH, Q48HOURS, APPLIED TO A SURFACE, USUALLY THE SKIN
     Dates: start: 20150930
  6. ARMOUR THYROID [Concomitant]
     Active Substance: THYROID, PORCINE\THYROID, UNSPECIFIED
  7. CARVEDILOL. [Concomitant]
     Active Substance: CARVEDILOL
  8. RAMIPRIL. [Concomitant]
     Active Substance: RAMIPRIL
  9. MORPHINE [Concomitant]
     Active Substance: MORPHINE
  10. MAGNESIUM [Concomitant]
     Active Substance: MAGNESIUM
  11. MULTIVITE [Concomitant]
     Active Substance: VITAMINS

REACTIONS (1)
  - Product packaging quantity issue [None]

NARRATIVE: CASE EVENT DATE: 20150930
